FAERS Safety Report 8726736 (Version 4)
Quarter: 2012Q4

REPORT INFORMATION
  Report Type: 
  Country: DE (occurrence: DE)
  Receive Date: 20120816
  Receipt Date: 20120914
  Transmission Date: 20130627
  Serious: Yes (Death)
  Sender: FDA-Public Use
  Company Number: DE-CELGENEUS-062-21880-12081332

PATIENT
  Age: 59 None
  Sex: Male
  Weight: 94 kg

DRUGS (12)
  1. REVLIMID [Suspect]
     Indication: MULTIPLE MYELOMA
     Route: 048
     Dates: start: 20120612
  2. DEXAMETHASONE [Concomitant]
     Indication: MULTIPLE MYELOMA
     Dosage: 17.1429 Milligram
     Route: 065
  3. DEXAMETHASONE [Concomitant]
     Dosage: 5.7143 Milligram
     Route: 065
  4. DOXICICLIN [Concomitant]
     Indication: ECZEMA
     Route: 065
  5. FLUCONAZOLE [Concomitant]
     Indication: ECZEMA
     Route: 065
  6. DUROGESIC [Concomitant]
     Indication: DRUG USE FOR UNKNOWN INDICATION
     Dosage: 8.3333
     Route: 065
  7. FRAXIPARINE [Concomitant]
     Indication: THROMBOSIS PROPHYLAXIS
     Route: 065
  8. METAMIZOLE [Concomitant]
     Indication: DRUG USE FOR UNKNOWN INDICATION
     Dosage: 3 Drops
     Route: 065
  9. PANTOPRAZOLE [Concomitant]
     Indication: DRUG USE FOR UNKNOWN INDICATION
     Dosage: 40 Milligram
     Route: 065
  10. NADROPARIN-CALCIUM [Concomitant]
     Indication: DRUG USE FOR UNKNOWN INDICATION
     Route: 058
  11. GAMMANORM [Concomitant]
     Indication: ECZEMA
     Dosage: 5.7143 milliliter
     Route: 058
  12. GAMMANORM [Concomitant]
     Dosage: 4.2857 milliliter
     Route: 058

REACTIONS (1)
  - Left ventricular failure [Fatal]
